FAERS Safety Report 24858295 (Version 2)
Quarter: 2025Q1

REPORT INFORMATION
  Report Type: Spontaneous
  Country: DE (occurrence: DE)
  Receive Date: 20250117
  Receipt Date: 20250122
  Transmission Date: 20250408
  Serious: Yes (Other)
  Sender: BAUSCH AND LOMB
  Company Number: None

PATIENT
  Age: 29 Year
  Sex: Male
  Weight: 78 kg

DRUGS (2)
  1. AZATHIOPRINE [Suspect]
     Active Substance: AZATHIOPRINE
     Indication: Colitis ulcerative
     Dosage: 50MG DAILY
     Route: 048
     Dates: start: 20241128, end: 20241222
  2. PREDNISOLONE [Concomitant]
     Active Substance: PREDNISOLONE
     Indication: Colitis ulcerative
     Route: 048
     Dates: start: 20241001

REACTIONS (8)
  - Nephritis [Recovered/Resolved]
  - Acute kidney injury [Recovered/Resolved]
  - Flank pain [Recovered/Resolved]
  - Blood creatinine increased [Recovered/Resolved]
  - Haematuria [Recovered/Resolved]
  - Proteinuria [Recovered/Resolved]
  - Abdominal pain [Recovered/Resolved]
  - Nausea [Recovered/Resolved]

NARRATIVE: CASE EVENT DATE: 20241201
